FAERS Safety Report 6020234-2 (Version None)
Quarter: 2008Q4

REPORT INFORMATION
  Report Type: 
  Country: None (occurrence: None)
  Receive Date: 20081226
  Receipt Date: 20081216
  Transmission Date: 20090506
  Serious: Yes (Disabling, Other)
  Sender: FDA-Public Use
  Company Number: PHHY2008CA22231

PATIENT
  Sex: Male

DRUGS (1)
  1. GLEEVEC [Suspect]
     Indication: ACUTE LYMPHOCYTIC LEUKAEMIA
     Dosage: 400 MG/DAY
     Route: 048
     Dates: start: 20050401, end: 20081001

REACTIONS (2)
  - DYSKINESIA [None]
  - PARKINSON'S DISEASE [None]
